FAERS Safety Report 6768253-2 (Version None)
Quarter: 2010Q2

REPORT INFORMATION
  Report Type: 
  Country: None (occurrence: None)
  Receive Date: 20100614
  Receipt Date: 20100607
  Transmission Date: 20101027
  Serious: Yes (Death, Other)
  Sender: FDA-Public Use
  Company Number: US-BAYER-200811518NA

PATIENT
  Age: 57 Year
  Sex: Female
  Weight: 71 kg

DRUGS (3)
  1. CAMPATH [Suspect]
     Indication: ACUTE LEUKAEMIA
     Route: 041
     Dates: start: 20070111, end: 20070114
  2. CLOFARABINE [Suspect]
     Indication: ACUTE LEUKAEMIA
     Route: 041
     Dates: start: 20070111, end: 20070114
  3. LOPRESSOR [Concomitant]
     Indication: MYOCARDIAL ISCHAEMIA

REACTIONS (9)
  - BRADYCARDIA [None]
  - BRONCHIOLITIS [None]
  - CARDIO-RESPIRATORY ARREST [None]
  - CHEST PAIN [None]
  - CONFUSIONAL STATE [None]
  - DYSPNOEA [None]
  - FALL [None]
  - HYPOTENSION [None]
  - TRAUMATIC LUNG INJURY [None]
